FAERS Safety Report 20491335 (Version 3)
Quarter: 2022Q3

REPORT INFORMATION
  Report Type: Report from Study
  Country: KR (occurrence: None)
  Receive Date: 20220218
  Receipt Date: 20220819
  Transmission Date: 20221027
  Serious: Yes (Hospitalization)
  Sender: FDA-Public Use
  Company Number: KR-Eisai Medical Research-EC-2022-107647

PATIENT
  Age: 60 Year
  Sex: Female
  Weight: 50.6 kg

DRUGS (9)
  1. LENVIMA [Suspect]
     Active Substance: LENVATINIB
     Indication: Endometrial cancer
     Route: 048
     Dates: start: 20211222, end: 202201
  2. LENVIMA [Suspect]
     Active Substance: LENVATINIB
     Dosage: DOSE DECREASED
     Route: 048
     Dates: start: 202201, end: 202201
  3. LENVIMA [Suspect]
     Active Substance: LENVATINIB
     Dosage: DOSE DECREASED
     Route: 048
     Dates: start: 202201, end: 202202
  4. LENVIMA [Suspect]
     Active Substance: LENVATINIB
     Dosage: DOSE DECREASED
     Route: 048
     Dates: start: 202202
  5. KEYTRUDA [Suspect]
     Active Substance: PEMBROLIZUMAB
     Indication: Endometrial cancer
     Route: 042
     Dates: start: 20211222, end: 20220112
  6. KEYTRUDA [Suspect]
     Active Substance: PEMBROLIZUMAB
     Route: 042
     Dates: start: 20220211
  7. NITROFURANTOIN [Concomitant]
     Active Substance: NITROFURANTOIN
     Route: 048
     Dates: start: 2020
  8. LYRICA [Concomitant]
     Active Substance: PREGABALIN
     Route: 048
  9. MAGO [Concomitant]
     Route: 048
     Dates: start: 20201201

REACTIONS (14)
  - Dyspnoea [Unknown]
  - Diarrhoea [Recovered/Resolved]
  - Mouth ulceration [Unknown]
  - Cough [Unknown]
  - Urinary incontinence [Recovered/Resolved]
  - Platelet count decreased [Unknown]
  - Aspartate aminotransferase increased [Unknown]
  - Alanine aminotransferase increased [Unknown]
  - Protein urine present [Unknown]
  - C-reactive protein increased [Unknown]
  - Blood albumin decreased [Unknown]
  - Haemoglobin decreased [Unknown]
  - Fibrin D dimer increased [Unknown]
  - Pleural effusion [Recovered/Resolved]

NARRATIVE: CASE EVENT DATE: 20220111
